FAERS Safety Report 9350597 (Version 1)
Quarter: 2013Q2

REPORT INFORMATION
  Report Type: Spontaneous
  Country: JP (occurrence: JP)
  Receive Date: 20130617
  Receipt Date: 20130617
  Transmission Date: 20140414
  Serious: Yes (Other)
  Sender: FDA-Public Use
  Company Number: JP-UCBSA-088915

PATIENT
  Sex: Female

DRUGS (2)
  1. NEUPRO [Suspect]
     Indication: PARKINSON^S DISEASE
     Dosage: THERAPY DURATION: 3 DAYS, DOSE UNKNOWN,
     Route: 062
  2. AMANTADINE HYDROCHLORIDE [Concomitant]
     Dosage: UNKNOWN DOSE

REACTIONS (4)
  - Suicidal ideation [Unknown]
  - Muscular weakness [Unknown]
  - Tremor [Unknown]
  - Application site dermatitis [Unknown]
